FAERS Safety Report 19413808 (Version 3)
Quarter: 2021Q3

REPORT INFORMATION
  Report Type: Report from Study
  Country: None (occurrence: CH)
  Receive Date: 20210615
  Receipt Date: 20210709
  Transmission Date: 20211014
  Serious: Yes (Other)
  Sender: FDA-Public Use
  Company Number: CH-ABBVIE-21K-151-3946948-00

PATIENT
  Sex: Male
  Weight: 59 kg

DRUGS (5)
  1. DUODOPA [Suspect]
     Active Substance: CARBIDOPA\LEVODOPA
     Dosage: MD 8 ML, CRD 3.4 ML/H, ED 2 ML
     Route: 050
     Dates: start: 20210319, end: 20210630
  2. DUODOPA [Suspect]
     Active Substance: CARBIDOPA\LEVODOPA
     Dosage: MD 5 ML, CRD 3.4 ML/H, CRN 2.0 ML ED 2 ML
     Route: 050
     Dates: start: 20210630
  3. DUODOPA [Suspect]
     Active Substance: CARBIDOPA\LEVODOPA
     Dosage: MD 8 ML, CRD 3.3 ML/H, ED 2 ML
     Route: 050
     Dates: start: 20210301, end: 20210319
  4. DUODOPA [Suspect]
     Active Substance: CARBIDOPA\LEVODOPA
     Indication: PARKINSON^S DISEASE
     Dosage: MD 4.5 ML, CRD 3.0 ML/H, ED 1 ML
     Route: 050
     Dates: start: 20210209, end: 20210212
  5. DUODOPA [Suspect]
     Active Substance: CARBIDOPA\LEVODOPA
     Dosage: MD 8 ML, CRD 3.2 ML/H, ED 2 ML
     Route: 050
     Dates: start: 20210212, end: 20210301

REACTIONS (1)
  - Amyotrophic lateral sclerosis [Unknown]

NARRATIVE: CASE EVENT DATE: 2021
